FAERS Safety Report 20138021 (Version 2)
Quarter: 2021Q4

REPORT INFORMATION
  Report Type: Spontaneous
  Country: HK (occurrence: HK)
  Receive Date: 20211202
  Receipt Date: 20211230
  Transmission Date: 20220303
  Serious: Yes (Other)
  Sender: FDA-Public Use
  Company Number: HK-009507513-2112HKG000539

PATIENT
  Age: 57 Year
  Sex: Female

DRUGS (4)
  1. KEYTRUDA [Suspect]
     Active Substance: PEMBROLIZUMAB
     Indication: Endometrial cancer recurrent
     Dosage: 200 MILLIGRAM, CYCLICAL
     Route: 042
     Dates: start: 202102, end: 202112
  2. KEYTRUDA [Suspect]
     Active Substance: PEMBROLIZUMAB
     Indication: Endometrial cancer metastatic
  3. LENVATINIB MESYLATE [Suspect]
     Active Substance: LENVATINIB MESYLATE
     Indication: Endometrial cancer recurrent
     Dosage: 20 MILLIGRAM, QD
     Route: 048
     Dates: start: 202102, end: 2021
  4. LENVATINIB MESYLATE [Suspect]
     Active Substance: LENVATINIB MESYLATE
     Indication: Endometrial cancer metastatic
     Dosage: 14 MILLIGRAM, QD
     Route: 048
     Dates: start: 2021, end: 202112

REACTIONS (9)
  - Glucocorticoid deficiency [Unknown]
  - Hypothyroidism [Unknown]
  - Stomatitis [Recovered/Resolved]
  - Odynophagia [Unknown]
  - Therapy partial responder [Unknown]
  - Dry skin [Unknown]
  - Hypertension [Unknown]
  - Myalgia [Unknown]
  - Headache [Recovered/Resolved]

NARRATIVE: CASE EVENT DATE: 20210101
